FAERS Safety Report 10597914 (Version 1)
Quarter: 2014Q4

REPORT INFORMATION
  Report Type: Spontaneous
  Country: US (occurrence: None)
  Receive Date: 20141120
  Receipt Date: 20141120
  Transmission Date: 20150529
  Serious: Yes (Other)
  Sender: FDA-Public Use
  Company Number: None

PATIENT
  Age: 87 Year
  Sex: Female
  Weight: 53.98 kg

DRUGS (1)
  1. PROLIA [Suspect]
     Active Substance: DENOSUMAB
     Indication: OSTEOPOROSIS
     Dosage: 2 SHOTS PER YEAR  2X PER YEAR  GIVEN INTO/UNDER THE SKIN
     Route: 058

REACTIONS (2)
  - Dry eye [None]
  - Eyelid function disorder [None]

NARRATIVE: CASE EVENT DATE: 20020814
